FAERS Safety Report 5635936-7 (Version None)
Quarter: 2008Q1

REPORT INFORMATION
  Report Type: 
  Country: None (occurrence: None)
  Receive Date: 20080224
  Receipt Date: 20080221
  Transmission Date: 20080703
  Serious: Yes (Other)
  Sender: FDA-Public Use
  Company Number: PHNU2008DE01066

PATIENT
  Age: 45 Year
  Sex: Female
  Weight: 57 kg

DRUGS (1)
  1. ELIDEL [Suspect]
     Indication: NEURODERMATITIS
     Route: 061
     Dates: start: 20070701, end: 20070901

REACTIONS (9)
  - ALANINE AMINOTRANSFERASE INCREASED [None]
  - ASPARTATE AMINOTRANSFERASE INCREASED [None]
  - BLOOD CREATINE PHOSPHOKINASE INCREASED [None]
  - BLOOD CREATINE PHOSPHOKINASE MB INCREASED [None]
  - BLOOD LACTATE DEHYDROGENASE INCREASED [None]
  - INFLUENZA LIKE ILLNESS [None]
  - NECK PAIN [None]
  - PAIN IN EXTREMITY [None]
  - RHABDOMYOLYSIS [None]
